FAERS Safety Report 6985155-7 (Version None)
Quarter: 2010Q3

REPORT INFORMATION
  Report Type: 
  Country: None (occurrence: None)
  Receive Date: 20100915
  Receipt Date: 20100906
  Transmission Date: 20110219
  Serious: Yes (Hospitalization, Disabling, Other)
  Sender: FDA-Public Use
  Company Number: JP-ROCHE-720452

PATIENT
  Sex: Female
  Weight: 34 kg

DRUGS (6)
  1. AVASTIN [Suspect]
     Indication: RECTAL CANCER METASTATIC
     Route: 041
     Dates: start: 20100602, end: 20100602
  2. ELPLAT [Concomitant]
     Route: 041
     Dates: start: 20100519, end: 20100602
  3. FLUOROURACIL [Concomitant]
     Route: 040
     Dates: start: 20100519, end: 20100601
  4. LEUCOVORIN CALCIUM [Concomitant]
     Route: 041
     Dates: start: 20100519, end: 20100602
  5. RAMELTEON [Concomitant]
     Route: 042
     Dates: start: 20100519, end: 20100602
  6. DECADRON [Concomitant]
     Route: 042
     Dates: start: 20100519, end: 20100602

REACTIONS (7)
  - CEREBRAL ARTERY EMBOLISM [None]
  - CEREBRAL INFARCTION [None]
  - PLATELET COUNT DECREASED [None]
  - PROTHROMBIN TIME PROLONGED [None]
  - TUMOUR HAEMORRHAGE [None]
  - TUMOUR LYSIS SYNDROME [None]
  - WHITE BLOOD CELL COUNT DECREASED [None]
